FAERS Safety Report 12537569 (Version 1)
Quarter: 2016Q3

REPORT INFORMATION
  Report Type: Spontaneous
  Country: US (occurrence: US)
  Receive Date: 20160707
  Receipt Date: 20160707
  Transmission Date: 20161109
  Serious: No
  Sender: FDA-Public Use
  Company Number: US-AMAG PHARMACEUTICALS, INC.-AMAG201601173

PATIENT

DRUGS (1)
  1. FERAHEME [Suspect]
     Active Substance: FERUMOXYTOL NON-STOICHIOMETRIC MAGNETITE
     Indication: IRON DEFICIENCY ANAEMIA
     Dosage: 510 MG, SINGLE
     Route: 041
     Dates: start: 20150819, end: 20150903

REACTIONS (4)
  - Administration site discolouration [Unknown]
  - Injection site extravasation [Unknown]
  - Administration site oedema [Unknown]
  - Administration site bruise [Unknown]

NARRATIVE: CASE EVENT DATE: 20150903
